FAERS Safety Report 4896948-4 (Version None)
Quarter: 2006Q1

REPORT INFORMATION
  Report Type: 
  Country: None (occurrence: None)
  Receive Date: 20060127
  Receipt Date: 20060112
  Transmission Date: 20060701
  Serious: Yes (Life-Threatening)
  Sender: FDA-Public Use
  Company Number: GB200601001950

PATIENT
  Age: 36 Year
  Sex: Female
  Weight: 50.8 kg

DRUGS (1)
  1. FLUOXETINE HCL [Suspect]
     Indication: ANXIETY
     Dosage: 1 D/F, DAILY (1/D), ORAL
     Route: 048
     Dates: start: 20051216, end: 20060103

REACTIONS (14)
  - ANXIETY [None]
  - ASTHENIA [None]
  - BONE PAIN [None]
  - DEPRESSED MOOD [None]
  - FATIGUE [None]
  - FEELING ABNORMAL [None]
  - HEADACHE [None]
  - HEART RATE INCREASED [None]
  - NASOPHARYNGITIS [None]
  - NAUSEA [None]
  - PAIN [None]
  - PARAESTHESIA [None]
  - VISION BLURRED [None]
  - VISUAL DISTURBANCE [None]
